FAERS Safety Report 10072472 (Version 2)
Quarter: 2014Q2

REPORT INFORMATION
  Report Type: Spontaneous
  Country: US (occurrence: None)
  Receive Date: 20140409
  Receipt Date: 20140414
  Transmission Date: 20141212
  Serious: Yes (Hospitalization)
  Sender: FDA-Public Use
  Company Number: 20140165

PATIENT
  Age: 34 Year
  Sex: Male

DRUGS (2)
  1. PHENYTOIN SODIUM INJECTION (40042-009-02) 50MG/ML [Suspect]
     Indication: PRODUCT USED FOR UNKNOWN INDICATION
     Dosage: AM
  2. ZONISAMIDE [Suspect]
     Indication: PRODUCT USED FOR UNKNOWN INDICATION

REACTIONS (16)
  - Paranoia [None]
  - Palpitations [None]
  - Delusion [None]
  - Dizziness [None]
  - Asthenia [None]
  - Sleep disorder [None]
  - Disturbance in attention [None]
  - Nystagmus [None]
  - Toxicity to various agents [None]
  - Gait disturbance [None]
  - Drug interaction [None]
  - Psychotic disorder [None]
  - Road traffic accident [None]
  - Hyperreflexia [None]
  - Blood pressure systolic increased [None]
  - Respiratory rate increased [None]
